FAERS Safety Report 9467405 (Version 1)
Quarter: 2013Q3

REPORT INFORMATION
  Report Type: Spontaneous
  Country: US (occurrence: None)
  Receive Date: 20130819
  Receipt Date: 20130819
  Transmission Date: 20140515
  Serious: Yes (Other)
  Sender: FDA-Public Use
  Company Number: None

PATIENT
  Age: 69 Year
  Sex: Female
  Weight: 72.58 kg

DRUGS (1)
  1. VICTOZA [Suspect]
     Indication: DIABETES MELLITUS
     Dosage: 1.8MG/QD  QD   SUBCUTANEOUS
     Route: 058
     Dates: start: 20111001, end: 20130816

REACTIONS (3)
  - Nausea [None]
  - Diarrhoea [None]
  - Brain neoplasm [None]
